FAERS Safety Report 23273190 (Version 1)
Quarter: 2023Q4

REPORT INFORMATION
  Report Type: Report from Study
  Country: US (occurrence: US)
  Receive Date: 20231207
  Receipt Date: 20231207
  Transmission Date: 20240109
  Serious: No
  Sender: FDA-Public Use
  Company Number: US-AstraZeneca-CH-00521134A

PATIENT
  Sex: Female

DRUGS (1)
  1. SOLIRIS [Suspect]
     Active Substance: ECULIZUMAB
     Indication: Paroxysmal nocturnal haemoglobinuria
     Dosage: UNK
     Route: 042

REACTIONS (6)
  - Illness [Recovering/Resolving]
  - Haematuria [Unknown]
  - General physical health deterioration [Unknown]
  - Chromaturia [Unknown]
  - Product dose omission issue [Unknown]
  - Nausea [Unknown]
